FAERS Safety Report 18776723 (Version 1)
Quarter: 2021Q1

REPORT INFORMATION
  Report Type: Spontaneous
  Country: US (occurrence: US)
  Receive Date: 20210122
  Receipt Date: 20210122
  Transmission Date: 20210419
  Serious: No
  Sender: FDA-Public Use
  Company Number: US-FRESENIUS MEDICAL CARE RENAL THERAPIES GROUP-FMC-2101-000076

PATIENT
  Age: 69 Year
  Sex: Male
  Weight: 81.4 kg

DRUGS (2)
  1. DELFLEX WITH DEXTROSE 2.5% LOW MAGNESIUM LOW CALCIUM [Suspect]
     Active Substance: CALCIUM CHLORIDE\DEXTROSE\MAGNESIUM CHLORIDE\SODIUM CHLORIDE\SODIUM LACTATE
     Indication: END STAGE RENAL DISEASE
     Dosage: AT 1700 ML FOR 5 CYCLES WITH NO LAST FILL AND A DAYTIME MANUAL EXCHANGE OF 1500 ML FOR APPROXIMATELY
     Route: 033
  2. DELFLEX WITH DEXTROSE 1.5% LOW MAGNESIUM LOW CALCIUM [Suspect]
     Active Substance: CALCIUM CHLORIDE\DEXTROSE\MAGNESIUM CHLORIDE\SODIUM CHLORIDE\SODIUM LACTATE
     Indication: END STAGE RENAL DISEASE
     Dosage: AT 1700 ML FOR 5 CYCLES WITH NO LAST FILL AND A DAYTIME MANUAL EXCHANGE OF 1500 ML FOR APPROXIMATELY
     Route: 033

REACTIONS (2)
  - Abdominal pain [Unknown]
  - Umbilical hernia [Recovered/Resolved]
